FAERS Safety Report 4269707-3 (Version None)
Quarter: 2004Q1

REPORT INFORMATION
  Report Type: 
  Country: None (occurrence: None)
  Receive Date: 20040112
  Receipt Date: 20031229
  Transmission Date: 20041129
  Serious: Yes (Other)
  Sender: FDA-Public Use
  Company Number: 2003126985

PATIENT
  Sex: Female
  Weight: 79.8331 kg

DRUGS (3)
  1. NARDIL [Suspect]
     Indication: ANXIETY
     Dosage: 45 MG (DAILY), ORAL
     Route: 048
  2. NARDIL [Suspect]
     Indication: DEPRESSION
     Dosage: 45 MG (DAILY), ORAL
     Route: 048
  3. ACETYLSALICYLIC ACID SRT [Concomitant]

REACTIONS (17)
  - ANXIETY [None]
  - ATTENTION DEFICIT/HYPERACTIVITY DISORDER [None]
  - CHILLS [None]
  - CRYING [None]
  - DEPRESSION [None]
  - DIARRHOEA [None]
  - DIPLOPIA [None]
  - DISEASE RECURRENCE [None]
  - DRUG INEFFECTIVE [None]
  - DYSGEUSIA [None]
  - ERUCTATION [None]
  - MUSCULAR WEAKNESS [None]
  - NAUSEA [None]
  - NIGHT SWEATS [None]
  - PANIC ATTACK [None]
  - VISION BLURRED [None]
  - WEIGHT INCREASED [None]
